FAERS Safety Report 8607625-8 (Version None)
Quarter: 2012Q3

REPORT INFORMATION
  Report Type: 
  Country: None (occurrence: None)
  Receive Date: 20120821
  Receipt Date: 20120814
  Transmission Date: 20120928
  Serious: No
  Sender: FDA-Public Use
  Company Number: US-BAYER-2012-085623

PATIENT

DRUGS (1)
  1. GADAVIST [Suspect]
     Dosage: UNK
     Dates: start: 20120813, end: 20120813

REACTIONS (2)
  - VOMITING [None]
  - MALAISE [None]
